FAERS Safety Report 8833006 (Version 1)
Quarter: 2012Q4

REPORT INFORMATION
  Report Type: 
  Country: MX (occurrence: MX)
  Receive Date: 20121010
  Receipt Date: 20121010
  Transmission Date: 20130627
  Serious: Yes (Other)
  Sender: FDA-Public Use
  Company Number: MX-PFIZER INC-2012250564

PATIENT
  Sex: Female

DRUGS (1)
  1. DOSTINEX [Suspect]
     Dosage: UNK
     Route: 048

REACTIONS (1)
  - Prolactinoma [Unknown]
